FAERS Safety Report 16645791 (Version 9)
Quarter: 2022Q2

REPORT INFORMATION
  Report Type: Report from Study
  Country: FR (occurrence: FR)
  Receive Date: 20190730
  Receipt Date: 20220412
  Transmission Date: 20220721
  Serious: Yes (Death, Hospitalization, Other)
  Sender: FDA-Public Use
  Company Number: FR-ABBVIE-18K-056-2528056-00

PATIENT
  Age: 64 Year
  Sex: Male
  Weight: 76 kg

DRUGS (15)
  1. VENETOCLAX [Suspect]
     Active Substance: VENETOCLAX
     Indication: Chronic lymphocytic leukaemia
     Route: 048
     Dates: start: 20180917, end: 20180923
  2. VENETOCLAX [Suspect]
     Active Substance: VENETOCLAX
     Route: 048
     Dates: start: 20180924, end: 20180930
  3. VENETOCLAX [Suspect]
     Active Substance: VENETOCLAX
     Route: 048
     Dates: start: 20181001, end: 20181007
  4. VENETOCLAX [Suspect]
     Active Substance: VENETOCLAX
     Route: 048
     Dates: start: 20181008, end: 20181014
  5. VENETOCLAX [Suspect]
     Active Substance: VENETOCLAX
     Route: 048
     Dates: start: 20181015, end: 20181021
  6. VENETOCLAX [Suspect]
     Active Substance: VENETOCLAX
     Route: 048
     Dates: start: 20181126, end: 20181211
  7. VENETOCLAX [Suspect]
     Active Substance: VENETOCLAX
     Route: 048
     Dates: start: 20181218, end: 20190319
  8. PRIVIGEN [Concomitant]
     Active Substance: HUMAN IMMUNOGLOBULIN G
     Indication: Immunosuppression
     Dates: start: 20180201
  9. VANCOMYCIN [Concomitant]
     Active Substance: VANCOMYCIN
     Indication: Infection
     Dates: start: 20190306, end: 20190309
  10. ENOXAPARIN [Concomitant]
     Active Substance: ENOXAPARIN
     Indication: Thrombosis prophylaxis
     Dates: start: 20190321, end: 20190420
  11. FLUCONAZOLE [Concomitant]
     Active Substance: FLUCONAZOLE
     Indication: Fungal infection
     Dates: start: 20190314, end: 20190321
  12. KETOPROFEN [Concomitant]
     Active Substance: KETOPROFEN
     Indication: Pyrexia
     Dates: start: 20190314, end: 20190317
  13. SOLU-MEDROL [Concomitant]
     Active Substance: METHYLPREDNISOLONE SODIUM SUCCINATE
     Indication: Pyrexia
     Dates: start: 20190326, end: 20190401
  14. PIPERACILLIN SODIUM [Concomitant]
     Active Substance: PIPERACILLIN SODIUM
     Indication: Infection
     Dates: start: 20190311, end: 20190316
  15. ACETAMINOPHEN [Concomitant]
     Active Substance: ACETAMINOPHEN
     Indication: Pyrexia
     Dates: start: 20190311, end: 20190327

REACTIONS (26)
  - Richter^s syndrome [Fatal]
  - Chronic lymphocytic leukaemia [Fatal]
  - Behaviour disorder [Not Recovered/Not Resolved]
  - Somnolence [Not Recovered/Not Resolved]
  - Hypoalbuminaemia [Not Recovered/Not Resolved]
  - Decreased appetite [Not Recovered/Not Resolved]
  - Malnutrition [Not Recovered/Not Resolved]
  - Cytopenia [Not Recovered/Not Resolved]
  - Confusional state [Not Recovered/Not Resolved]
  - Hyponatraemia [Recovered/Resolved]
  - Renal failure [Recovered/Resolved]
  - Anaemia [Not Recovered/Not Resolved]
  - Hyperthermia [Not Recovered/Not Resolved]
  - Hypophosphataemia [Recovered/Resolved]
  - Neutropenia [Recovered/Resolved]
  - Anaemia [Recovering/Resolving]
  - Hyperthermia [Recovering/Resolving]
  - General physical health deterioration [Not Recovered/Not Resolved]
  - Asthenia [Recovered/Resolved]
  - Neutropenia [Recovered/Resolved]
  - Executive dysfunction [Not Recovered/Not Resolved]
  - Blood phosphorus increased [Recovered/Resolved]
  - Fatigue [Recovered/Resolved]
  - Hyperkalaemia [Recovered/Resolved]
  - Neutropenia [Recovered/Resolved]
  - Anaemia [Not Recovered/Not Resolved]

NARRATIVE: CASE EVENT DATE: 20180928
